FAERS Safety Report 9660896 (Version 3)
Quarter: 2013Q4

REPORT INFORMATION
  Report Type: Spontaneous
  Country: IT (occurrence: IT)
  Receive Date: 20131031
  Receipt Date: 20131217
  Transmission Date: 20140711
  Serious: Yes (Hospitalization, Other)
  Sender: FDA-Public Use
  Company Number: IT-OTSUKA-EU-2013-10265

PATIENT
  Age: 83 Year
  Sex: Male

DRUGS (8)
  1. PLETAL [Suspect]
     Indication: THROMBOSIS PROPHYLAXIS
     Dosage: 50 MG MILLIGRAM(S), BID
     Route: 048
     Dates: start: 20080101, end: 20130907
  2. COUMADIN [Suspect]
     Indication: ATRIAL FIBRILLATION
     Dosage: 5 MG MILLIGRAM(S), UNKNOWN
     Route: 048
     Dates: start: 20080101, end: 20130907
  3. LOBIVON [Concomitant]
     Indication: HYPERTENSION
     Dosage: UNK UNK, UNKNOWN
     Route: 048
  4. BOTAM [Concomitant]
     Dosage: UNK UNK, UNKNOWN
     Route: 048
  5. SUCRALFIN [Concomitant]
     Dosage: UNK UNK, UNKNOWN
     Route: 048
  6. COAPROVEL [Concomitant]
     Dosage: UNK UNK, UNKNOWN
     Route: 048
  7. LOSEC [Concomitant]
     Dosage: UNK UNK, UNKNOWN
     Route: 048
  8. VERAPAMIL HYDROCHLORIDE [Concomitant]
     Dosage: UNK, UNKNOWN
     Route: 065

REACTIONS (15)
  - Anaemia [Recovering/Resolving]
  - Melaena [Recovering/Resolving]
  - Haemorrhage [Unknown]
  - Anal haemorrhage [Unknown]
  - Diverticulitis [Unknown]
  - Large intestinal stenosis [Unknown]
  - Haemorrhoids [Unknown]
  - Coagulation time abnormal [Unknown]
  - Atrial fibrillation [Unknown]
  - Embolism arterial [Unknown]
  - Haemorrhoids [Unknown]
  - Diverticulum [Unknown]
  - Cerebrovascular disorder [Unknown]
  - Endarterectomy [Unknown]
  - Haematochezia [Unknown]
